FAERS Safety Report 4474900-0 (Version None)
Quarter: 2004Q4

REPORT INFORMATION
  Report Type: 
  Country: None (occurrence: None)
  Receive Date: 20041014
  Receipt Date: 20041005
  Transmission Date: 20050328
  Serious: Yes (Hospitalization, Other)
  Sender: FDA-Public Use
  Company Number: ES-MERCK-0410ESP00036

PATIENT
  Age: 80 Year
  Sex: Male

DRUGS (2)
  1. VIOXX [Suspect]
     Indication: OSTEOARTHRITIS
     Route: 048
     Dates: start: 20000101
  2. VIOXX [Suspect]
     Indication: SURGERY
     Route: 048
     Dates: start: 20000101

REACTIONS (4)
  - ACUTE MYOCARDIAL INFARCTION [None]
  - LOWER LIMB DEFORMITY [None]
  - MYOCARDIAL INFARCTION [None]
  - OSTEOMYELITIS [None]
